FAERS Safety Report 20535153 (Version 1)
Quarter: 2022Q1

REPORT INFORMATION
  Report Type: Spontaneous
  Country: FR (occurrence: FR)
  Receive Date: 20220302
  Receipt Date: 20220302
  Transmission Date: 20220423
  Serious: Yes (Life-Threatening)
  Sender: FDA-Public Use
  Company Number: None

PATIENT
  Age: 48 Year
  Sex: Female
  Weight: 74 kg

DRUGS (6)
  1. CLOZAPINE [Suspect]
     Active Substance: CLOZAPINE
     Indication: Psychotic disorder
     Dosage: 100 MILLIGRAM DAILY; IN THE EVENING
     Route: 048
     Dates: start: 202111, end: 20220124
  2. ESOMEPRAZOLE [Concomitant]
     Active Substance: ESOMEPRAZOLE
     Dosage: 1 DOSAGE FORMS DAILY; EVENING; ESOMEPRAZOLE ACTAVIS 20 MG, GASTRO-RESISTANT CAPSULE
  3. ANAFRANIL [Concomitant]
     Active Substance: CLOMIPRAMINE HYDROCHLORIDE
     Dosage: 3 DOSAGE FORMS DAILY; IN THE MORNING; ANAFRANIL 75 MG, SCORED FILM-COATED TABLET
  4. CYAMEMAZINE [Concomitant]
     Active Substance: CYAMEMAZINE
     Dosage: 1 MORNING, NOON, EVENING AND NIGHT IF NEEDED, CYAMEMAZINE BIOGARAN 25 MG, SCORED FILM-COATED TABLET
  5. LYRICA [Concomitant]
     Active Substance: PREGABALIN
     Dosage: 4 DOSAGE FORMS DAILY; 1 MORNING, NOON, EVENING AND NIGHT, LYRICA 75 MG, CAPSULE
  6. NAPROXEN [Concomitant]
     Active Substance: NAPROXEN
     Dosage: 2 DOSAGE FORMS DAILY; 1 MORNING AND EVENING; APRANAX 500 MG, SUPPOSITORY

REACTIONS (1)
  - Agranulocytosis [Not Recovered/Not Resolved]

NARRATIVE: CASE EVENT DATE: 20220120
